FAERS Safety Report 7384755-2 (Version None)
Quarter: 2011Q1

REPORT INFORMATION
  Report Type: 
  Country: None (occurrence: None)
  Receive Date: 20110330
  Receipt Date: 20110324
  Transmission Date: 20110831
  Serious: Yes (Life-Threatening, Hospitalization, Other)
  Sender: FDA-Public Use
  Company Number: PHHY2011FR24467

PATIENT
  Sex: Male

DRUGS (8)
  1. BI-PROFENID [Suspect]
     Indication: PAIN
     Dosage: UNK
     Route: 048
     Dates: start: 20101201
  2. TRUVADA [Suspect]
     Indication: HIV INFECTION
     Dosage: 200MG OF EMTRICITABINE AND 136MG OF TENOFOVIR ONCE DAILY
     Route: 048
     Dates: start: 20060101, end: 20110114
  3. KALETRA [Suspect]
     Indication: HIV INFECTION
     Dosage: 2 DF, BID
     Route: 048
     Dates: start: 20060101, end: 20110114
  4. VOLTAREN [Concomitant]
     Indication: ARTHRALGIA
  5. STAGID [Concomitant]
     Dosage: 1000 MG, QD
     Dates: start: 20100901, end: 20101201
  6. VOLTARENE LP [Suspect]
     Dosage: 1 DF, TWO OR THREE TIMES DAILY
     Route: 048
     Dates: end: 20110120
  7. FLECTOR [Concomitant]
     Dosage: UNK
  8. VOLTARENE LP [Suspect]
     Indication: ARTHRALGIA
     Dosage: 75 MG, TWO OR THREE TIMES DAILY
     Route: 048
     Dates: start: 20100601, end: 20100701

REACTIONS (18)
  - RENAL FAILURE ACUTE [None]
  - ARTHRALGIA [None]
  - MITOCHONDRIAL TOXICITY [None]
  - HYPERPHOSPHATURIA [None]
  - HYPOKALAEMIA [None]
  - ABDOMINAL PAIN [None]
  - ASTHENIA [None]
  - BLOOD CREATININE INCREASED [None]
  - WEIGHT DECREASED [None]
  - DIARRHOEA [None]
  - BLOOD CREATINE PHOSPHOKINASE INCREASED [None]
  - GAIT DISTURBANCE [None]
  - MYALGIA [None]
  - BLOOD PHOSPHORUS DECREASED [None]
  - FANCONI SYNDROME [None]
  - GLYCOSURIA [None]
  - GAMMA-GLUTAMYLTRANSFERASE INCREASED [None]
  - GENERAL PHYSICAL HEALTH DETERIORATION [None]
